FAERS Safety Report 9749340 (Version 1)
Quarter: 2013Q4

REPORT INFORMATION
  Report Type: Spontaneous
  Country: ES (occurrence: ES)
  Receive Date: 20131212
  Receipt Date: 20131212
  Transmission Date: 20140711
  Serious: Yes (Death, Hospitalization)
  Sender: FDA-Public Use
  Company Number: ES-CELGENEUS-144-50794-13115814

PATIENT
  Age: 58 Year
  Sex: Male

DRUGS (1)
  1. VIDAZA [Suspect]
     Indication: REFRACTORY ANAEMIA WITH AN EXCESS OF BLASTS
     Route: 065

REACTIONS (4)
  - Cardiac arrest [Fatal]
  - Acute pulmonary oedema [Fatal]
  - Myositis [Unknown]
  - Myositis [Unknown]
